FAERS Safety Report 14155417 (Version 1)
Quarter: 2017Q4

REPORT INFORMATION
  Report Type: Spontaneous
  Country: US (occurrence: US)
  Receive Date: 20171103
  Receipt Date: 20171103
  Transmission Date: 20180321
  Serious: Yes (Death, Other)
  Sender: FDA-Public Use
  Company Number: US-RECKITT BENCKISER HEALTHCARE INT LIMITED-RB-97417-2017

PATIENT
  Age: 60 Year
  Sex: Male

DRUGS (1)
  1. MUCINEX [Suspect]
     Active Substance: GUAIFENESIN
     Indication: PRODUCT USED FOR UNKNOWN INDICATION
     Dosage: 1 TABLET EVERY 12 HOURS FOR THE PAST 3-4 WEEKS
     Route: 065
     Dates: start: 20170901

REACTIONS (3)
  - Constipation [Unknown]
  - Myocardial infarction [Fatal]
  - Abdominal pain [Unknown]

NARRATIVE: CASE EVENT DATE: 201710
